FAERS Safety Report 6410161-0 (Version None)
Quarter: 2009Q4

REPORT INFORMATION
  Report Type: 
  Country: None (occurrence: None)
  Receive Date: 20091022
  Receipt Date: 20091013
  Transmission Date: 20100525
  Serious: Yes (Other)
  Sender: FDA-Public Use
  Company Number: US-ROCHE-662625

PATIENT
  Sex: Male
  Weight: 71.7 kg

DRUGS (18)
  1. MYCOPHENOLATE MOFETIL [Suspect]
     Indication: DRUG USE FOR UNKNOWN INDICATION
     Route: 065
     Dates: start: 20010313, end: 20080610
  2. SULFAMETHOXAZOLE AND TRIMETHOPRIM [Suspect]
     Indication: DRUG USE FOR UNKNOWN INDICATION
     Route: 048
     Dates: start: 20010313, end: 20080610
  3. ARANESP [Suspect]
     Indication: RENAL FAILURE CHRONIC
     Dosage: FREQUENCY: EVERY TWO TO FOUR WEEKS.
     Route: 065
     Dates: start: 20060101
  4. ARANESP [Suspect]
     Route: 065
     Dates: start: 20070725, end: 20080612
  5. CYCLOSPORINE [Concomitant]
  6. PREDNISONE [Concomitant]
     Dates: start: 20010313
  7. ATENOLOL [Concomitant]
     Dates: start: 20011002
  8. DOXAZOSIN MESILATE [Concomitant]
     Dates: start: 20070912
  9. CLONIDINE [Concomitant]
     Dates: start: 20080116
  10. LOSARTAN POTASSIUM [Concomitant]
     Dates: start: 20060818
  11. SIMVASTATIN [Concomitant]
     Dates: start: 20070314
  12. OSCAL [Concomitant]
     Dates: start: 20021112
  13. PANTOPRAZOLE SODIUM [Concomitant]
     Dates: start: 20070223
  14. SODIUM BICARBONATE IN PLASTIC CONTAINER [Concomitant]
     Dates: start: 20070523
  15. TUMS [Concomitant]
     Dates: start: 20071204
  16. AMLODIPINE BESYLATE [Concomitant]
     Dates: start: 20040325
  17. MULTI-VITAMINS [Concomitant]
  18. CALCITRIOL [Concomitant]
     Dosage: DRUG: CALCITROL
     Dates: start: 20080311

REACTIONS (4)
  - ANAEMIA [None]
  - APLASIA PURE RED CELL [None]
  - GLOMERULONEPHRITIS MEMBRANOPROLIFERATIVE [None]
  - WEIGHT DECREASED [None]
